FAERS Safety Report 5530775-X (Version None)
Quarter: 2007Q4

REPORT INFORMATION
  Report Type: 
  Country: None (occurrence: None)
  Receive Date: 20071130
  Receipt Date: 20071119
  Transmission Date: 20080405
  Serious: Yes (Other)
  Sender: FDA-Public Use
  Company Number: US-ELI_LILLY_AND_COMPANY-US200711004574

PATIENT
  Sex: Male

DRUGS (4)
  1. CYMBALTA [Suspect]
     Indication: DEPRESSION
     Dosage: 90 MG, DAILY (1/D)
     Route: 048
     Dates: start: 20061101
  2. TOPAMAX [Concomitant]
  3. AMBIEN [Concomitant]
  4. RISPERDAL [Concomitant]

REACTIONS (2)
  - GASTRIC BYPASS [None]
  - PROCEDURAL NAUSEA [None]
